FAERS Safety Report 11964651 (Version 1)
Quarter: 2016Q1

REPORT INFORMATION
  Report Type: Spontaneous
  Country: US (occurrence: US)
  Receive Date: 20160127
  Receipt Date: 20160127
  Transmission Date: 20160526
  Serious: No
  Sender: FDA-Public Use
  Company Number: US-009507513-1601USA009471

PATIENT
  Sex: Female

DRUGS (1)
  1. NUVARING [Suspect]
     Active Substance: ETHINYL ESTRADIOL\ETONOGESTREL
     Dosage: STRENGTH 0.015/0.12 MG 3 STANDARD DOSE OF 1
     Route: 067
     Dates: start: 201507

REACTIONS (2)
  - Device breakage [Unknown]
  - No adverse event [Unknown]

NARRATIVE: CASE EVENT DATE: 201507
